FAERS Safety Report 6977442-3 (Version None)
Quarter: 2010Q3

REPORT INFORMATION
  Report Type: 
  Country: None (occurrence: None)
  Receive Date: 20100910
  Receipt Date: 20100830
  Transmission Date: 20110219
  Serious: Yes (Other)
  Sender: FDA-Public Use
  Company Number: CA-GENENTECH-279821

PATIENT
  Sex: Female

DRUGS (3)
  1. OMALIZUMAB [Suspect]
     Indication: ASTHMA
     Dosage: 300 MG, 1/MONTH
     Route: 058
     Dates: start: 20090126
  2. OMALIZUMAB [Suspect]
     Dosage: UNK
     Route: 058
     Dates: start: 20090427
  3. OMALIZUMAB [Suspect]
     Dosage: UNK
     Dates: start: 20090619

REACTIONS (15)
  - BLOOD PRESSURE INCREASED [None]
  - DERMATITIS [None]
  - DIZZINESS [None]
  - HEADACHE [None]
  - HOT FLUSH [None]
  - HYPERSENSITIVITY [None]
  - MUSCLE SPASMS [None]
  - PARAESTHESIA [None]
  - PHARYNGEAL OEDEMA [None]
  - PRURITUS GENERALISED [None]
  - PYREXIA [None]
  - RASH [None]
  - RASH MACULAR [None]
  - SWELLING [None]
  - SWELLING FACE [None]
